FAERS Safety Report 5916960-3 (Version None)
Quarter: 2008Q4

REPORT INFORMATION
  Report Type: 
  Country: None (occurrence: None)
  Receive Date: 20081013
  Receipt Date: 20081008
  Transmission Date: 20090506
  Serious: Yes (Hospitalization)
  Sender: FDA-Public Use
  Company Number: JP-ASTRAZENECA-2008AP07581

PATIENT
  Age: 70 Year
  Sex: Male
  Weight: 46 kg

DRUGS (3)
  1. DIPRIVAN [Suspect]
     Indication: SEDATION
     Route: 042
     Dates: start: 20080918, end: 20080924
  2. ULTIVA [Concomitant]
     Dosage: DOSE UNKNOWN
     Route: 041
     Dates: start: 20080918
  3. ESLAX [Concomitant]
     Dosage: DOSE UNKNOWN
     Route: 041
     Dates: start: 20080918

REACTIONS (1)
  - DELAYED RECOVERY FROM ANAESTHESIA [None]
